FAERS Safety Report 6274126-4 (Version None)
Quarter: 2009Q3

REPORT INFORMATION
  Report Type: 
  Country: None (occurrence: None)
  Receive Date: 20090720
  Receipt Date: 20090715
  Transmission Date: 20100115
  Serious: Yes (Death, Other)
  Sender: FDA-Public Use
  Company Number: PHHY2009FR29368

PATIENT
  Sex: Female

DRUGS (3)
  1. EXELON [Suspect]
     Indication: PARKINSONISM
     Dosage: 9.5 MG DAILY
     Route: 062
     Dates: start: 20090610
  2. EXELON [Suspect]
     Dosage: 4.6 MG DAILY
     Route: 062
  3. DEROXAT [Concomitant]

REACTIONS (4)
  - ASPIRATION [None]
  - DELIRIUM [None]
  - HALLUCINATION, VISUAL [None]
  - HYPONATRAEMIA [None]
